FAERS Safety Report 14204390 (Version 1)
Quarter: 2017Q4

REPORT INFORMATION
  Report Type: Spontaneous
  Country: US (occurrence: US)
  Receive Date: 20171117
  Receipt Date: 20171117
  Transmission Date: 20180321
  Serious: Yes (Hospitalization)
  Sender: FDA-Public Use
  Company Number: None

PATIENT
  Age: 17 Year
  Sex: Male
  Weight: 70.3 kg

DRUGS (3)
  1. IBUPROFEN. [Suspect]
     Active Substance: IBUPROFEN
     Indication: BACK PAIN
     Dosage: ?          OTHER FREQUENCY:Q 5 - 6 HR;?ORAL
     Route: 048
     Dates: start: 20171004, end: 20171117
  2. NAPROXEN. [Concomitant]
     Active Substance: NAPROXEN
  3. IBUPROFEN. [Suspect]
     Active Substance: IBUPROFEN
     Indication: BACK INJURY
     Dosage: ?          OTHER FREQUENCY:Q 5 - 6 HR;?ORAL
     Route: 048
     Dates: start: 20171004, end: 20171117

REACTIONS (1)
  - Gastric ulcer perforation [None]

NARRATIVE: CASE EVENT DATE: 20171117
